FAERS Safety Report 7085395-5 (Version None)
Quarter: 2010Q4

REPORT INFORMATION
  Report Type: 
  Country: None (occurrence: None)
  Receive Date: 20101105
  Receipt Date: 20101101
  Transmission Date: 20110411
  Serious: Yes (Other)
  Sender: FDA-Public Use
  Company Number: GB-PFIZER INC-2010132864

PATIENT
  Age: 8 Year
  Sex: Male

DRUGS (1)
  1. SOMATROPIN [Suspect]
     Indication: GROWTH HORMONE DEFICIENCY
     Dosage: UNK
     Dates: start: 20021001

REACTIONS (1)
  - EPILEPSY [None]
